FAERS Safety Report 13692843 (Version 1)
Quarter: 2017Q2

REPORT INFORMATION
  Report Type: Spontaneous
  Country: IN (occurrence: IN)
  Receive Date: 20170627
  Receipt Date: 20170627
  Transmission Date: 20170830
  Serious: Yes (Hospitalization, Other)
  Sender: FDA-Public Use
  Company Number: IN-SUN PHARMACEUTICAL INDUSTRIES LTD-2017R1-143889

PATIENT
  Age: 23 Year
  Sex: Female

DRUGS (3)
  1. FUROSEMIDE. [Suspect]
     Active Substance: FUROSEMIDE
     Indication: PRODUCT USED FOR UNKNOWN INDICATION
     Dosage: 1200 MG/DAY
     Route: 065
  2. FLUOXETINE [Concomitant]
     Active Substance: FLUOXETINE HYDROCHLORIDE
     Indication: ANOREXIA NERVOSA
     Dosage: 20 MG, DAILY
  3. OLANZAPINE. [Concomitant]
     Active Substance: OLANZAPINE
     Indication: ANOREXIA NERVOSA
     Dosage: 10 MG, DAILY
     Route: 065

REACTIONS (2)
  - Hypokalaemia [Recovered/Resolved]
  - Drug use disorder [Recovering/Resolving]
